FAERS Safety Report 7610737-9 (Version None)
Quarter: 2011Q3

REPORT INFORMATION
  Report Type: 
  Country: None (occurrence: None)
  Receive Date: 20110715
  Receipt Date: 20110708
  Transmission Date: 20111222
  Serious: Yes (Other)
  Sender: FDA-Public Use
  Company Number: CA-ELI_LILLY_AND_COMPANY-CA201107002414

PATIENT
  Sex: Female

DRUGS (2)
  1. HUMALOG [Suspect]
     Route: 058
  2. HUMALOG [Suspect]
     Route: 058

REACTIONS (3)
  - EYE HAEMORRHAGE [None]
  - BLOOD GLUCOSE INCREASED [None]
  - DRUG INEFFECTIVE [None]
